FAERS Safety Report 13425094 (Version 2)
Quarter: 2017Q2

REPORT INFORMATION
  Report Type: Report from Study
  Country: US (occurrence: US)
  Receive Date: 20170411
  Receipt Date: 20170421
  Transmission Date: 20170830
  Serious: Yes (Other)
  Sender: FDA-Public Use
  Company Number: US-AMGEN-USASL2017052843

PATIENT
  Age: 75 Year
  Sex: Female

DRUGS (3)
  1. REPATHA [Suspect]
     Active Substance: EVOLOCUMAB
     Dosage: 140 MG, QMO
     Route: 065
  2. REPATHA [Suspect]
     Active Substance: EVOLOCUMAB
     Indication: HYPERCHOLESTEROLAEMIA
     Dosage: 140 MG, Q2WK
     Route: 065
  3. PRALUENT [Concomitant]
     Active Substance: ALIROCUMAB

REACTIONS (6)
  - Aphasia [Unknown]
  - Memory impairment [Unknown]
  - Blood triglycerides increased [Unknown]
  - Off label use [Unknown]
  - Glycosylated haemoglobin increased [Unknown]
  - Adverse event [Unknown]
